FAERS Safety Report 4430467-4 (Version None)
Quarter: 2004Q3

REPORT INFORMATION
  Report Type: 
  Country: None (occurrence: None)
  Receive Date: 20040721
  Receipt Date: 20040506
  Transmission Date: 20050211
  Serious: Yes (Other)
  Sender: FDA-Public Use
  Company Number: WAES 0405USA00698

PATIENT

DRUGS (1)
  1. VIOXX [Suspect]
     Dosage: PO
     Route: 048

REACTIONS (1)
  - RENAL FAILURE [None]
